FAERS Safety Report 11428809 (Version 1)
Quarter: 2015Q3

REPORT INFORMATION
  Report Type: Spontaneous
  Country: US (occurrence: US)
  Receive Date: 20150828
  Receipt Date: 20150828
  Transmission Date: 20151125
  Serious: No
  Sender: FDA-Public Use
  Company Number: US-ROCHE-1227949

PATIENT
  Sex: Female

DRUGS (3)
  1. RIBAVIRIN. [Suspect]
     Active Substance: RIBAVIRIN
     Indication: CHRONIC HEPATITIS C
     Route: 065
     Dates: start: 20130224
  2. PEGASYS [Suspect]
     Active Substance: PEGINTERFERON ALFA-2A
     Route: 058
     Dates: start: 201304
  3. PEGASYS [Suspect]
     Active Substance: PEGINTERFERON ALFA-2A
     Indication: CHRONIC HEPATITIS C
     Route: 058
     Dates: start: 20130224, end: 201304

REACTIONS (7)
  - Hepatomegaly [Unknown]
  - Malaise [Unknown]
  - Back pain [Recovered/Resolved]
  - Musculoskeletal pain [Unknown]
  - Hepatic pain [Recovered/Resolved]
  - Memory impairment [Not Recovered/Not Resolved]
  - Pain in extremity [Recovered/Resolved]
